FAERS Safety Report 16070354 (Version 1)
Quarter: 2019Q1

REPORT INFORMATION
  Report Type: Spontaneous
  Country: IT (occurrence: IT)
  Receive Date: 20190314
  Receipt Date: 20190314
  Transmission Date: 20190418
  Serious: Yes (Hospitalization, Other)
  Sender: FDA-Public Use
  Company Number: IT-BRISTOL-MYERS SQUIBB COMPANY-BMS-2019-022794

PATIENT
  Age: 70 Year
  Sex: Male

DRUGS (1)
  1. OPDIVO [Suspect]
     Active Substance: NIVOLUMAB
     Indication: LUNG ADENOCARCINOMA
     Dosage: 480 MILLIGRAM
     Route: 065

REACTIONS (2)
  - Hypoacusis [Recovering/Resolving]
  - Mastoiditis [Recovering/Resolving]

NARRATIVE: CASE EVENT DATE: 20190104
